FAERS Safety Report 9007331 (Version 2)
Quarter: 2013Q1

REPORT INFORMATION
  Report Type: Spontaneous
  Country: US (occurrence: US)
  Receive Date: 20130110
  Receipt Date: 20130111
  Transmission Date: 20140127
  Serious: Yes (Death)
  Sender: FDA-Public Use
  Company Number: US-PFIZER INC-2013007372

PATIENT
  Age: 21 Year
  Sex: Male

DRUGS (7)
  1. OXYCODONE HYDROCHLORIDE [Suspect]
     Dosage: UNK
  2. COCAINE [Suspect]
     Dosage: UNK
  3. AMPHETAMINE [Suspect]
     Dosage: UNK
  4. CARISOPRODOL [Suspect]
     Dosage: UNK
  5. NORDAZEPAM [Suspect]
     Dosage: UNK
  6. DIPHENHYDRAMINE [Suspect]
     Dosage: UNK
  7. MEPROBAMATE [Suspect]
     Dosage: UNK

REACTIONS (2)
  - Cardiac arrest [Fatal]
  - Respiratory arrest [Fatal]
